FAERS Safety Report 12264951 (Version 1)
Quarter: 2016Q2

REPORT INFORMATION
  Report Type: Spontaneous
  Country: US (occurrence: US)
  Receive Date: 20160413
  Receipt Date: 20160413
  Transmission Date: 20160815
  Serious: No
  Sender: FDA-Public Use
  Company Number: US-JNJFOC-20160312603

PATIENT
  Age: 67 Year
  Sex: Female
  Weight: 71.22 kg

DRUGS (1)
  1. TYLENOL EXTRA STRENGTH [Suspect]
     Active Substance: ACETAMINOPHEN
     Indication: HEADACHE
     Dosage: UNSPECIFIED DOSE AND FREQUENCY (TOTAL OF 6 CAPLETS)
     Route: 048
     Dates: start: 20160310, end: 20160310

REACTIONS (2)
  - Expired product administered [Unknown]
  - Product label issue [Unknown]

NARRATIVE: CASE EVENT DATE: 20160310
